FAERS Safety Report 7978460-9 (Version None)
Quarter: 2011Q4

REPORT INFORMATION
  Report Type: 
  Country: None (occurrence: None)
  Receive Date: 20111214
  Receipt Date: 20111209
  Transmission Date: 20120403
  Serious: Yes (Hospitalization, Other)
  Sender: FDA-Public Use
  Company Number: US-BAYER-2011-054811

PATIENT
  Age: 47 Year
  Sex: Female

DRUGS (4)
  1. BETASERON [Suspect]
     Dosage: 8 MIU, QOD
     Dates: start: 20110924
  2. METHADONE HCL [Suspect]
     Indication: BACK PAIN
     Dosage: UNK
     Dates: end: 20110401
  3. BETASERON [Suspect]
     Indication: MULTIPLE SCLEROSIS
     Dosage: 8 MIU, QOD
     Route: 058
     Dates: start: 20100924
  4. MORPHINE [Suspect]
     Indication: BACK PAIN
     Dosage: UNK
     Dates: end: 20110401

REACTIONS (8)
  - TOXICITY TO VARIOUS AGENTS [None]
  - INCISION SITE INFECTION [None]
  - INJECTION SITE INDURATION [None]
  - DRUG DELIVERY DEVICE IMPLANTATION [None]
  - INJECTION SITE SCAB [None]
  - DRUG DEPENDENCE [None]
  - INJECTION SITE PAIN [None]
  - INJECTION SITE ERYTHEMA [None]
